FAERS Safety Report 9911903 (Version 2)
Quarter: 2014Q1

REPORT INFORMATION
  Report Type: Spontaneous
  Country: US (occurrence: US)
  Receive Date: 20140219
  Receipt Date: 20140219
  Transmission Date: 20141002
  Serious: No
  Sender: FDA-Public Use
  Company Number: US-MYLANLABS-2013S1017491

PATIENT
  Sex: Female

DRUGS (1)
  1. EPIPEN JR [Suspect]
     Dosage: UNK

REACTIONS (2)
  - Injury associated with device [Unknown]
  - Injection site pain [Unknown]
